FAERS Safety Report 5162543-5 (Version None)
Quarter: 2006Q4

REPORT INFORMATION
  Report Type: 
  Country: None (occurrence: None)
  Receive Date: 20061201
  Receipt Date: 20061115
  Transmission Date: 20070319
  Serious: Yes (Death)
  Sender: FDA-Public Use
  Company Number: JP-BOEHRINGER INGELHEIM PHARMACEUTICALS, INC.-2006-BP-13345NB

PATIENT
  Age: 60 Year

DRUGS (3)
  1. SPIRIVA [Suspect]
     Indication: CHRONIC OBSTRUCTIVE PULMONARY DISEASE
     Route: 055
  2. LOXONIN (LOXOPROFEN SODIUM) [Concomitant]
     Route: 048
  3. ANTIPHLOGISTIC ENZYME [Concomitant]
     Route: 048

REACTIONS (1)
  - DEATH [None]
